FAERS Safety Report 6916599-7 (Version None)
Quarter: 2010Q3

REPORT INFORMATION
  Report Type: 
  Country: None (occurrence: None)
  Receive Date: 20100810
  Receipt Date: 20100726
  Transmission Date: 20110219
  Serious: Yes (Other)
  Sender: FDA-Public Use
  Company Number: DE-ROCHE-717654

PATIENT
  Sex: Male
  Weight: 65 kg

DRUGS (13)
  1. BEVACIZUMAB [Suspect]
     Indication: COLORECTAL CANCER METASTATIC
     Route: 065
  2. OXALIPLATIN [Suspect]
     Indication: COLORECTAL CANCER METASTATIC
     Route: 065
  3. OXALIPLATIN [Suspect]
     Dosage: DOSE REDUCED ON AN UNSPECIFIED DATE IN RESPONSE TO THE EVENT.
     Route: 065
  4. IRINOTECAN HCL [Suspect]
     Indication: COLORECTAL CANCER METASTATIC
     Route: 065
  5. FLUOROURACIL [Suspect]
     Indication: COLORECTAL CANCER METASTATIC
     Route: 065
  6. FOLINIC ACID [Suspect]
     Indication: COLORECTAL CANCER METASTATIC
     Route: 065
  7. STEROFUNDIN [Concomitant]
     Indication: GENERAL PHYSICAL HEALTH DETERIORATION
     Dosage: DATE OF LAST ADMINISTARTION: 10 MAY 2010
     Dates: start: 20100501
  8. SODIUM CHLORIDE [Concomitant]
     Indication: GENERAL PHYSICAL HEALTH DETERIORATION
     Dosage: DATE OF LAST ADMINISTARTION: 02 MAY 2010, FORM: INFUSION
     Dates: start: 20100430
  9. IMODIUM [Concomitant]
     Dosage: DATE OF LAST ADMINISTARTION:  09 MAY 2010
     Dates: start: 20100505
  10. GLUCOSE INFUSION [Concomitant]
     Indication: GENERAL PHYSICAL HEALTH DETERIORATION
     Dosage: DATE OF LAST ADMINISTARTION:  12 MAY 2010
     Dates: start: 20100510
  11. VOMEX A [Concomitant]
     Indication: NAUSEA
     Dosage: DRUG REPORTED: VOMEX, DATE OF LAST ADMINISTARTION:08 MAY 2010
     Dates: start: 20100508
  12. PASPERTIN [Concomitant]
     Indication: NAUSEA
     Dates: start: 20100510
  13. MCP [Concomitant]
     Indication: NAUSEA
     Dosage: DATE OF LAST ADMINISTARTION: 13 MAY 2010, DRUG REPORTED: MCP 30 RETARD
     Dates: start: 20100508

REACTIONS (1)
  - GENERAL PHYSICAL HEALTH DETERIORATION [None]
